FAERS Safety Report 6186301-8 (Version None)
Quarter: 2009Q2

REPORT INFORMATION
  Report Type: 
  Country: None (occurrence: None)
  Receive Date: 20090507
  Receipt Date: 20090507
  Transmission Date: 20091009
  Serious: Yes (Hospitalization)
  Sender: FDA-Public Use
  Company Number: None

PATIENT
  Sex: Male
  Weight: 97.977 kg

DRUGS (2)
  1. VANCOMYCIN [Suspect]
     Indication: ARTHRITIS BACTERIAL
     Dosage: 1500 MG Q 12 HOURS IV DRIP
     Route: 041
     Dates: start: 20090424, end: 20090428
  2. VANCOMYCIN [Suspect]

REACTIONS (3)
  - CHILLS [None]
  - INFUSION RELATED REACTION [None]
  - PYREXIA [None]
